FAERS Safety Report 8406975-8 (Version None)
Quarter: 2012Q2

REPORT INFORMATION
  Report Type: 
  Country: None (occurrence: None)
  Receive Date: 20120529
  Receipt Date: 20060606
  Transmission Date: 20120825
  Serious: Yes (Death, Other)
  Sender: FDA-Public Use
  Company Number: 02100-JPN-05-0157

PATIENT
  Age: 84 Year
  Sex: Male
  Weight: 70 kg

DRUGS (6)
  1. MUCODYNE (CARBOCISTEINE) [Concomitant]
  2. UNASYN [Concomitant]
  3. BROACT (CEFPIROME SULFATE) [Concomitant]
  4. BISOLVON (BROMHEXINE HYDROCHLORIDE) [Concomitant]
  5. PLETAL [Suspect]
     Indication: ANTICOAGULANT THERAPY
     Dosage: 100 MG, BID, OTHER
     Route: 050
     Dates: start: 20050225, end: 20050309
  6. VALPROATE SODIUM [Concomitant]

REACTIONS (10)
  - PYREXIA [None]
  - MALIGNANT PLEURAL EFFUSION [None]
  - ALTERED STATE OF CONSCIOUSNESS [None]
  - CONDITION AGGRAVATED [None]
  - ELECTROCARDIOGRAM ST-T SEGMENT ABNORMAL [None]
  - BUNDLE BRANCH BLOCK LEFT [None]
  - RESPIRATORY FAILURE [None]
  - MOUTH BREATHING [None]
  - LUNG NEOPLASM MALIGNANT [None]
  - SUPRAVENTRICULAR TACHYCARDIA [None]
